FAERS Safety Report 4487818-4 (Version None)
Quarter: 2004Q4

REPORT INFORMATION
  Report Type: 
  Country: None (occurrence: None)
  Receive Date: 20041025
  Receipt Date: 20041007
  Transmission Date: 20050328
  Serious: Yes (Hospitalization)
  Sender: FDA-Public Use
  Company Number: S04-CAN-06658-01

PATIENT

DRUGS (3)
  1. TIAZAC [Suspect]
  2. DIGOXIN [Concomitant]
  3. BETA-BLOCKER [Concomitant]

REACTIONS (1)
  - BRADYCARDIA [None]
